FAERS Safety Report 9054066 (Version 1)
Quarter: 2013Q1

REPORT INFORMATION
  Report Type: Spontaneous
  Country: US (occurrence: US)
  Receive Date: 20130208
  Receipt Date: 20130208
  Transmission Date: 20140127
  Serious: Yes (Hospitalization, Other)
  Sender: FDA-Public Use
  Company Number: US-COVIDIEN/TYCO HEALTHCARE/MALLINCKRODT-T201300396

PATIENT
  Age: 16 None
  Sex: Female

DRUGS (1)
  1. GABLOFEN [Suspect]
     Indication: MUSCLE SPASTICITY
     Dosage: 556 MCG/DAY
     Route: 037

REACTIONS (9)
  - Underdose [Recovered/Resolved]
  - Withdrawal syndrome [Recovered/Resolved]
  - Tachycardia [Recovered/Resolved]
  - Muscle spasticity [Recovered/Resolved]
  - Body temperature increased [Recovered/Resolved]
  - Muscle spasms [Recovered/Resolved]
  - Salivary hypersecretion [Recovered/Resolved]
  - Hyperhidrosis [Recovered/Resolved]
  - Device failure [Recovered/Resolved]
